FAERS Safety Report 16779091 (Version 2)
Quarter: 2020Q4

REPORT INFORMATION
  Report Type: Spontaneous
  Country: US (occurrence: US)
  Receive Date: 20190906
  Receipt Date: 20201202
  Transmission Date: 20210113
  Serious: Yes (Hospitalization, Other)
  Sender: FDA-Public Use
  Company Number: US-APOTEX-2019AP021516

PATIENT
  Age: 6 Year
  Sex: Female
  Weight: 28 kg

DRUGS (4)
  1. GUANFACINE. [Suspect]
     Active Substance: GUANFACINE
     Indication: ATTENTION DEFICIT HYPERACTIVITY DISORDER
     Dosage: 2 MG, Q.AM, (0.07 MG/KG)
     Route: 065
  2. CLONIDINE. [Concomitant]
     Active Substance: CLONIDINE
     Indication: ATTENTION DEFICIT HYPERACTIVITY DISORDER
     Dosage: 0.1 MG, DAILY
     Route: 065
  3. GUANFACINE. [Suspect]
     Active Substance: GUANFACINE
     Dosage: 1 MG, EACH EVENING, (0.03 MG/KG)
     Route: 065
  4. MULTIVITAMINS                      /00116001/ [Concomitant]
     Active Substance: VITAMINS
     Indication: PRODUCT USED FOR UNKNOWN INDICATION
     Dosage: UNK
     Route: 065

REACTIONS (11)
  - Toxicity to various agents [Unknown]
  - Bradycardia [Recovered/Resolved]
  - Somnolence [Recovered/Resolved]
  - Vomiting [Recovered/Resolved]
  - Mental status changes [Recovered/Resolved]
  - Drug level increased [Recovered/Resolved]
  - Mental impairment [Recovered/Resolved]
  - Hypophagia [Recovered/Resolved]
  - Sinus bradycardia [Recovered/Resolved]
  - Accidental exposure to product by child [Recovered/Resolved]
  - Lethargy [Recovered/Resolved]
